FAERS Safety Report 5535734-9 (Version None)
Quarter: 2007Q4

REPORT INFORMATION
  Report Type: 
  Country: None (occurrence: None)
  Receive Date: 20071204
  Receipt Date: 20071204
  Transmission Date: 20080405
  Serious: Yes (Life-Threatening, Hospitalization)
  Sender: FDA-Public Use
  Company Number: None

PATIENT
  Age: 77 Year
  Sex: Female
  Weight: 84.4 kg

DRUGS (13)
  1. LEVAQUIN [Suspect]
     Indication: PNEUMONIA
     Dosage: 750MG
     Dates: start: 20071018
  2. FUROSEMIDE [Concomitant]
  3. LABETOLOL [Concomitant]
  4. NORVASC [Concomitant]
  5. CLONIDINE [Concomitant]
  6. CAPTOPRIL [Concomitant]
  7. ASPIRIN [Concomitant]
  8. INSULIN [Concomitant]
  9. PAXIL [Concomitant]
  10. RANITIDINE HCL [Concomitant]
  11. PERCOCET [Concomitant]
  12. FOSRENOL [Concomitant]
  13. SENSIPAR [Concomitant]

REACTIONS (1)
  - TORSADE DE POINTES [None]
